FAERS Safety Report 6523018-1 (Version None)
Quarter: 2009Q4

REPORT INFORMATION
  Report Type: 
  Country: None (occurrence: None)
  Receive Date: 20091230
  Receipt Date: 20091217
  Transmission Date: 20100525
  Serious: Yes (Hospitalization)
  Sender: FDA-Public Use
  Company Number: IT-GENENTECH-294487

PATIENT
  Sex: Female

DRUGS (11)
  1. MABTHERA [Suspect]
     Indication: DIFFUSE LARGE B-CELL LYMPHOMA
     Dosage: 375 MG/M2, UNK
     Route: 042
     Dates: start: 20091013, end: 20091013
  2. MABTHERA [Suspect]
     Dosage: UNK
     Route: 042
     Dates: start: 20091123
  3. ENDOXAN [Suspect]
     Indication: DIFFUSE LARGE B-CELL LYMPHOMA
     Dosage: 750 MG/M2, UNK
     Route: 042
     Dates: start: 20091014, end: 20091014
  4. ENDOXAN [Suspect]
     Dosage: UNK
     Route: 042
     Dates: start: 20091124
  5. FARMORUBICINA [Suspect]
     Indication: DIFFUSE LARGE B-CELL LYMPHOMA
     Dosage: 75 MG/M2, UNK
     Route: 042
     Dates: start: 20091014, end: 20091014
  6. FARMORUBICINA [Suspect]
     Dosage: UNK
     Route: 042
     Dates: start: 20091124
  7. VINCRISTINA [Suspect]
     Indication: DIFFUSE LARGE B-CELL LYMPHOMA
     Dosage: 1.4 MG/M2, UNK
     Route: 042
     Dates: start: 20091014, end: 20091014
  8. VINCRISTINA [Suspect]
     Dosage: UNK
     Dates: start: 20091124
  9. ATENOLOLO [Concomitant]
     Indication: DRUG USE FOR UNKNOWN INDICATION
     Dosage: 100 MG, UNK
     Route: 048
     Dates: start: 20050101, end: 20091021
  10. DELTACORTENE [Concomitant]
     Indication: DIFFUSE LARGE B-CELL LYMPHOMA
     Dosage: 100 MG, UNK
     Route: 048
     Dates: start: 20091014, end: 20091018
  11. CATAPRESAN TTS [Concomitant]
     Indication: DRUG USE FOR UNKNOWN INDICATION
     Dosage: 2.5 MG, UNK
     Route: 062
     Dates: start: 20050101, end: 20091021

REACTIONS (5)
  - CATHETER SITE HAEMORRHAGE [None]
  - DEHYDRATION [None]
  - DIARRHOEA [None]
  - FEBRILE NEUTROPENIA [None]
  - STOMATITIS [None]
